FAERS Safety Report 8557927 (Version 2)
Quarter: 2014Q2

REPORT INFORMATION
  Report Type: Spontaneous
  Country: US (occurrence: US)
  Receive Date: 20120511
  Receipt Date: 20140508
  Transmission Date: 20141212
  Serious: No
  Sender: FDA-Public Use
  Company Number: US-GLAXOSMITHKLINE-A0881626A

PATIENT
  Age: 61 Year
  Sex: Female
  Weight: 62.7 kg

DRUGS (10)
  1. TYKERB [Suspect]
     Indication: PRODUCT USED FOR UNKNOWN INDICATION
     Dosage: 1750MG PER DAY
     Route: 048
     Dates: start: 20060101
  2. HERCEPTIN [Concomitant]
     Indication: BREAST CANCER
     Route: 042
  3. AROMASIN [Concomitant]
  4. LEVOTHYROXINE [Concomitant]
  5. UNSPECIFIED MEDICATION [Concomitant]
  6. CENTRUM [Concomitant]
  7. B12 [Concomitant]
  8. VITAMIN D3 [Concomitant]
  9. VITAMIN C [Concomitant]
  10. PROBIOTIC [Concomitant]

REACTIONS (12)
  - Diarrhoea [Recovered/Resolved]
  - Nausea [Recovered/Resolved]
  - Retching [Recovered/Resolved]
  - Vomiting [Recovered/Resolved]
  - Prescribed overdose [Recovered/Resolved]
  - Constipation [Recovered/Resolved]
  - Dizziness [Unknown]
  - Gingival recession [Unknown]
  - Gingival pain [Unknown]
  - Gingival swelling [Unknown]
  - Rash [Not Recovered/Not Resolved]
  - Dysphonia [Unknown]
